FAERS Safety Report 9835177 (Version 1)
Quarter: 2014Q1

REPORT INFORMATION
  Report Type: Spontaneous
  Country: US (occurrence: US)
  Receive Date: 20140122
  Receipt Date: 20140122
  Transmission Date: 20141002
  Serious: No
  Sender: FDA-Public Use
  Company Number: US-BRISTOL-MYERS SQUIBB COMPANY-19845262

PATIENT
  Age: 48 Year
  Sex: Male
  Weight: 127.43 kg

DRUGS (8)
  1. ELIQUIS [Suspect]
     Indication: ATRIAL FIBRILLATION
     Dates: start: 20130816
  2. AMIODARONE HCL [Concomitant]
  3. LISINOPRIL + HCTZ [Concomitant]
     Dosage: 1DF:20MG/12.5MG
  4. ATORVASTATIN [Concomitant]
  5. OMEPRAZOLE [Concomitant]
  6. XANAX [Concomitant]
  7. PERCOCET [Concomitant]
     Dosage: 1DF:10MG/325MG 6/DAY
  8. LIDOCAINE [Concomitant]
     Indication: PAIN
     Dosage: LIDOCAINE 5% 12 HOURS/12 HOURS OFF DAILY

REACTIONS (1)
  - Alopecia [Unknown]
